FAERS Safety Report 14347017 (Version 1)
Quarter: 2018Q1

REPORT INFORMATION
  Report Type: Spontaneous
  Country: BR (occurrence: BR)
  Receive Date: 20180103
  Receipt Date: 20180103
  Transmission Date: 20180509
  Serious: Yes (Hospitalization)
  Sender: FDA-Public Use
  Company Number: BR-SA-2017SA262309

PATIENT
  Age: 73 Year
  Sex: Female

DRUGS (5)
  1. ARAVA [Suspect]
     Active Substance: LEFLUNOMIDE
     Indication: HYPERTENSION
     Route: 048
  2. ABLOK [Suspect]
     Active Substance: ATENOLOL
     Indication: HYPERTENSION
     Dosage: START DATE OVER 1 YEAR AGO
     Route: 065
  3. OLMETEC  HCT [Suspect]
     Active Substance: HYDROCHLOROTHIAZIDE\OLMESARTAN MEDOXOMIL
     Indication: HYPERTENSION
     Route: 065
  4. BRASART HCT [Suspect]
     Active Substance: HYDROCHLOROTHIAZIDE\VALSARTAN
     Indication: HYPERTENSION
     Route: 065
  5. INDAPEN [Suspect]
     Active Substance: INDAPAMIDE
     Indication: HYPERTENSION
     Route: 065
     Dates: start: 201710

REACTIONS (4)
  - Osteoarthritis [Not Recovered/Not Resolved]
  - Hypertension [Unknown]
  - Tachycardia [Unknown]
  - Hospitalisation [Recovered/Resolved]

NARRATIVE: CASE EVENT DATE: 201711
